FAERS Safety Report 21963099 (Version 1)
Quarter: 2023Q1

REPORT INFORMATION
  Report Type: Spontaneous
  Country: US (occurrence: None)
  Receive Date: 20230205
  Receipt Date: 20230205
  Transmission Date: 20230417
  Serious: Yes (Disabling)
  Sender: FDA-Public Use
  Company Number: None

PATIENT
  Age: 57 Year
  Sex: Female
  Weight: 76.5 kg

DRUGS (9)
  1. CLOPIDOGREL [Suspect]
     Active Substance: CLOPIDOGREL BISULFATE
     Indication: Product used for unknown indication
     Dosage: OTHER QUANTITY : 1 TABLET(S);?
     Route: 048
     Dates: start: 20220901, end: 20230201
  2. TIROSINT [Concomitant]
     Active Substance: LEVOTHYROXINE SODIUM
  3. BUPROPION [Concomitant]
     Active Substance: BUPROPION
  4. DULOXETINE [Concomitant]
     Active Substance: DULOXETINE
  5. ZETIA [Concomitant]
     Active Substance: EZETIMIBE
  6. Vitamins D [Concomitant]
  7. VITAMIN C [Concomitant]
     Active Substance: ASCORBIC ACID
  8. MAGNESIUM [Concomitant]
     Active Substance: MAGNESIUM
  9. FISH OIL [Concomitant]
     Active Substance: FISH OIL

REACTIONS (9)
  - Arthralgia [None]
  - Arthralgia [None]
  - Arthralgia [None]
  - Peripheral swelling [None]
  - Mobility decreased [None]
  - Headache [None]
  - Contusion [None]
  - Paraesthesia [None]
  - Hypoaesthesia [None]

NARRATIVE: CASE EVENT DATE: 20230101
